FAERS Safety Report 19284281 (Version 2)
Quarter: 2021Q2

REPORT INFORMATION
  Report Type: Spontaneous
  Country: AU (occurrence: AU)
  Receive Date: 20210521
  Receipt Date: 20210602
  Transmission Date: 20210717
  Serious: Yes (Hospitalization, Other)
  Sender: FDA-Public Use
  Company Number: AU-SA-2021SA166328

PATIENT
  Age: 38 Year
  Sex: Female
  Weight: 75 kg

DRUGS (1)
  1. ALEMTUZUMAB [Suspect]
     Active Substance: ALEMTUZUMAB
     Indication: MULTIPLE SCLEROSIS
     Dosage: 12 MG, QD
     Route: 042
     Dates: start: 20200928, end: 20200930

REACTIONS (2)
  - Herpes zoster [Recovering/Resolving]
  - Immunosuppression [Unknown]

NARRATIVE: CASE EVENT DATE: 20210512
